FAERS Safety Report 5658587-7 (Version None)
Quarter: 2008Q1

REPORT INFORMATION
  Report Type: 
  Country: None (occurrence: None)
  Receive Date: 20080310
  Receipt Date: 20070926
  Transmission Date: 20080703
  Serious: No
  Sender: FDA-Public Use
  Company Number: US-BAYER-200710734BCC

PATIENT
  Age: 49 Year
  Sex: Female
  Weight: 109 kg

DRUGS (9)
  1. ALEVE [Suspect]
     Indication: PAIN IN EXTREMITY
     Dosage: TOTAL DAILY DOSE: 1320 MG  UNIT DOSE: 220 MG
     Route: 048
     Dates: start: 20070303, end: 20070306
  2. ALEVE [Suspect]
     Dosage: TOTAL DAILY DOSE: 220 MG  UNIT DOSE: 220 MG
     Route: 048
     Dates: start: 20070307, end: 20070307
  3. LITHIUM CARBONATE [Concomitant]
  4. COLACE [Concomitant]
  5. KLOR-CON [Concomitant]
  6. CIPRO [Concomitant]
  7. XANAX [Concomitant]
  8. FUROSEMIDE [Concomitant]
  9. VICOPROFEN [Concomitant]

REACTIONS (2)
  - METRORRHAGIA [None]
  - MUSCLE SPASMS [None]
